FAERS Safety Report 5570409-1 (Version None)
Quarter: 2007Q4

REPORT INFORMATION
  Report Type: 
  Country: None (occurrence: None)
  Receive Date: 20071221
  Receipt Date: 20071211
  Transmission Date: 20080405
  Serious: Yes (Other)
  Sender: FDA-Public Use
  Company Number: PHBS2007CN17013

PATIENT
  Sex: Female

DRUGS (2)
  1. SEBIVO [Suspect]
     Dosage: 600 MG, QD
     Route: 048
  2. THYROID THERAPY [Concomitant]

REACTIONS (2)
  - MUSCULAR WEAKNESS [None]
  - SOMNOLENCE [None]
